FAERS Safety Report 4542808-8 (Version None)
Quarter: 2004Q4

REPORT INFORMATION
  Report Type: 
  Country: None (occurrence: None)
  Receive Date: 20041229
  Receipt Date: 20041220
  Transmission Date: 20050328
  Serious: Yes (Hospitalization, Other)
  Sender: FDA-Public Use
  Company Number: HQWYE125121DEC04

PATIENT
  Age: 57 Year
  Sex: Female
  Weight: 63.56 kg

DRUGS (3)
  1. EFFEXOR XR [Suspect]
     Indication: DEPRESSION
     Dosage: 150 MG 1X PER 1 DAY, ORAL
     Route: 048
     Dates: start: 20021201
  2. EFFEXOR XR [Suspect]
     Indication: MIGRAINE
     Dosage: 150 MG 1X PER 1 DAY, ORAL
     Route: 048
     Dates: start: 20021201
  3. TOPOMAX (TOPIRAMATE0 [Concomitant]

REACTIONS (1)
  - PAPILLARY THYROID CANCER [None]
